FAERS Safety Report 7065061-2 (Version None)
Quarter: 2010Q4

REPORT INFORMATION
  Report Type: 
  Country: None (occurrence: None)
  Receive Date: 20101027
  Receipt Date: 19890925
  Transmission Date: 20110411
  Serious: Yes (Death, Hospitalization)
  Sender: FDA-Public Use
  Company Number: US-ROCHE-890200900001

PATIENT
  Age: 17 Year
  Sex: Male
  Weight: 51.7 kg

DRUGS (4)
  1. INTERFERON ALFA-2A [Suspect]
     Indication: KAPOSI'S SARCOMA
     Route: 058
     Dates: start: 19890430, end: 19890530
  2. INTERFERON ALFA-2A [Suspect]
     Route: 058
     Dates: start: 19890531
  3. INTERFERON ALFA-2A [Suspect]
     Route: 058
     Dates: end: 19890905
  4. PENTAMIDINE ISETHIONATE [Concomitant]
     Route: 055

REACTIONS (3)
  - AZOTAEMIA [None]
  - DISEASE PROGRESSION [None]
  - NEPHROTIC SYNDROME [None]
